FAERS Safety Report 8401761-7 (Version None)
Quarter: 2012Q2

REPORT INFORMATION
  Report Type: 
  Country: None (occurrence: None)
  Receive Date: 20120601
  Receipt Date: 20120522
  Transmission Date: 20120825
  Serious: Yes (Hospitalization)
  Sender: FDA-Public Use
  Company Number: US-BAYER-2012-008471

PATIENT
  Age: 27 Year
  Sex: Female
  Weight: 104.31 kg

DRUGS (61)
  1. AMOXICILLIN AND CLAVULANATE POTASSIUM [Concomitant]
     Dosage: UNK
     Dates: start: 20051101
  2. IBUPROFEN [Concomitant]
     Dosage: UNK
     Dates: start: 20030101
  3. CIPROFLOXACIN [Concomitant]
     Dosage: UNK
     Dates: start: 20050501
  4. CEPHALEXIN [Concomitant]
     Dosage: UNK
     Dates: start: 20031201
  5. ALPRAZOLAM [Concomitant]
     Dosage: UNK
     Dates: start: 20071201
  6. AZITHROMYCIN [Concomitant]
     Dosage: UNK
     Dates: start: 20070201
  7. METRONIDAZOLE [Concomitant]
     Dosage: UNK
     Dates: start: 20080901
  8. CEFADROXIL [Concomitant]
     Dosage: UNK
     Dates: start: 20090201
  9. AMOXICILLIN AND CLAVULANATE POTASSIUM [Concomitant]
     Dosage: UNK
     Dates: start: 20060101
  10. IBUPROFEN [Concomitant]
     Dosage: UNK
     Dates: start: 20050401
  11. CIPROFLOXACIN [Concomitant]
     Dosage: UNK
     Dates: start: 20040801
  12. METRONIDAZOLE [Concomitant]
     Dosage: UNK
     Dates: start: 20070901
  13. METRONIDAZOLE [Concomitant]
     Dosage: UNK
     Dates: start: 20080301
  14. METRONIDAZOLE [Concomitant]
     Dosage: UNK
     Dates: start: 20080701
  15. HYDROCODONE BITARTRATE AND ACETAMINOPHEN [Concomitant]
     Indication: PAIN
     Dosage: UNK
     Dates: start: 20070701, end: 20090601
  16. CLINDAMYCIN [Concomitant]
     Dosage: UNK
     Dates: start: 20030501
  17. AMOXICILLIN AND CLAVULANATE POTASSIUM [Concomitant]
     Dosage: UNK
     Dates: start: 20030701
  18. AMOXICILLIN AND CLAVULANATE POTASSIUM [Concomitant]
     Dosage: UNK
     Dates: start: 20070701
  19. IBUPROFEN [Concomitant]
     Dosage: UNK
     Dates: start: 20080701
  20. IBUPROFEN [Concomitant]
     Dosage: UNK
     Dates: start: 20080801
  21. CEPHALEXIN [Concomitant]
     Dosage: UNK
     Dates: start: 20050901
  22. ALPRAZOLAM [Concomitant]
     Dosage: UNK
     Dates: start: 20090701
  23. AZITHROMYCIN [Concomitant]
     Dosage: UNK
     Dates: start: 20060817
  24. AZITHROMYCIN [Concomitant]
     Dosage: UNK
     Dates: start: 20080901
  25. DROSPIRENONE AND ETHINYL ESTRADIOL [Suspect]
     Indication: CONTRACEPTION
     Dosage: UNK
     Dates: start: 20081208, end: 20081229
  26. ALBUTEROL [Concomitant]
     Dosage: UNK
     Dates: start: 20090101
  27. AMOXICILLIN AND CLAVULANATE POTASSIUM [Concomitant]
     Dosage: UNK
     Dates: start: 20070401
  28. METRONIDAZOLE [Concomitant]
     Dosage: UNK
     Dates: start: 20070401
  29. AMOXICILLIN AND CLAVULANATE POTASSIUM [Concomitant]
     Dosage: UNK
     Dates: start: 20060901
  30. CEPHALEXIN [Concomitant]
     Dosage: UNK
     Dates: start: 20050801
  31. METRONIDAZOLE [Concomitant]
     Dosage: UNK
     Dates: start: 20090101
  32. CLINDAMYCIN [Concomitant]
     Dosage: UNK
     Dates: start: 20080701
  33. AMOXICILLIN AND CLAVULANATE POTASSIUM [Concomitant]
  34. CIPROFLOXACIN [Concomitant]
     Dosage: UNK
     Dates: start: 20030701
  35. ALPRAZOLAM [Concomitant]
     Dosage: UNK
     Dates: start: 20090601
  36. AZITHROMYCIN [Concomitant]
     Dosage: UNK
     Dates: start: 20060101
  37. LISINOPRIL [Concomitant]
     Indication: HYPERTENSION
     Dosage: 10 MG, QD
     Route: 048
     Dates: start: 20070601, end: 20090301
  38. BUPROPION HYDROCHLORIDE [Concomitant]
     Indication: DEPRESSION
     Dosage: UNK
     Dates: start: 20070601, end: 20090501
  39. CEFADROXIL [Concomitant]
     Dosage: UNK
     Dates: start: 20070801
  40. ALBUTEROL [Concomitant]
     Dosage: UNK
     Dates: start: 20020801
  41. ALBUTEROL [Concomitant]
     Dosage: UNK
     Dates: start: 20060101
  42. CLINDAMYCIN [Concomitant]
     Dosage: UNK
     Dates: start: 20021101
  43. AMOXICILLIN AND CLAVULANATE POTASSIUM [Concomitant]
     Dosage: UNK
     Dates: start: 20041101
  44. AMOXICILLIN AND CLAVULANATE POTASSIUM [Concomitant]
     Dosage: UNK
     Dates: start: 20080701
  45. IBUPROFEN [Concomitant]
     Dosage: UNK
     Dates: start: 20060101
  46. CIPROFLOXACIN [Concomitant]
     Dosage: UNK
     Dates: start: 20081101
  47. IMITREX [Concomitant]
     Indication: MIGRAINE
     Dosage: UNK
     Dates: start: 20050101, end: 20080101
  48. LAMICTAL [Concomitant]
     Indication: BIPOLAR DISORDER
     Dosage: UNK
     Dates: start: 20050401, end: 20080801
  49. ALPRAZOLAM [Concomitant]
     Dosage: UNK
     Dates: start: 20080501, end: 20090201
  50. AZITHROMYCIN [Concomitant]
     Dosage: UNK
     Dates: start: 20090201
  51. METRONIDAZOLE [Concomitant]
     Dosage: UNK
     Dates: start: 20080601
  52. YASMIN [Suspect]
     Indication: CONTRACEPTION
     Dosage: UNK
     Route: 048
     Dates: start: 20050330, end: 20071216
  53. AMOXICILLIN AND CLAVULANATE POTASSIUM [Concomitant]
     Dosage: UNK
     Dates: start: 20021201
  54. AMOXICILLIN AND CLAVULANATE POTASSIUM [Concomitant]
     Dosage: UNK
     Dates: start: 20050401
  55. AMOXICILLIN AND CLAVULANATE POTASSIUM [Concomitant]
     Dosage: UNK
     Dates: start: 20071001
  56. CEPHALEXIN [Concomitant]
     Dosage: UNK
     Dates: start: 20090401
  57. CYCLOBENZAPRINE [Concomitant]
     Indication: MUSCLE RELAXANT THERAPY
     Dosage: 10 MG, TID
     Route: 048
     Dates: start: 20050401, end: 20090501
  58. ALPRAZOLAM [Concomitant]
     Indication: ANXIETY
     Dosage: UNK
     Dates: start: 20050601, end: 20070301
  59. AZITHROMYCIN [Concomitant]
     Dosage: UNK
     Dates: start: 20060802
  60. METRONIDAZOLE [Concomitant]
     Dosage: UNK
     Dates: start: 20071101
  61. METRONIDAZOLE [Concomitant]
     Dosage: UNK
     Dates: start: 20081001

REACTIONS (12)
  - PAIN [None]
  - ABDOMINAL PAIN UPPER [None]
  - CHOLECYSTITIS ACUTE [None]
  - INJURY [None]
  - NAUSEA [None]
  - EMOTIONAL DISTRESS [None]
  - GALLBLADDER CHOLESTEROLOSIS [None]
  - CHOLELITHIASIS [None]
  - VOMITING [None]
  - DEPRESSION [None]
  - GENERAL PHYSICAL HEALTH DETERIORATION [None]
  - ANXIETY [None]
